FAERS Safety Report 15787650 (Version 2)
Quarter: 2019Q1

REPORT INFORMATION
  Report Type: Spontaneous
  Country: None (occurrence: CL)
  Receive Date: 20190103
  Receipt Date: 20190313
  Transmission Date: 20190417
  Serious: Yes (Hospitalization)
  Sender: FDA-Public Use
  Company Number: CL-POPULATION COUNCIL, INC.-2060835

PATIENT
  Age: 21 Year
  Sex: Female

DRUGS (1)
  1. JADELLE [Suspect]
     Active Substance: LEVONORGESTREL
     Dates: start: 201805

REACTIONS (6)
  - Muscular weakness [None]
  - Fatigue [None]
  - Memory impairment [None]
  - Hemiplegia [None]
  - Thalamic infarction [Recovered/Resolved with Sequelae]
  - Facial asymmetry [None]

NARRATIVE: CASE EVENT DATE: 20181218
